FAERS Safety Report 19762873 (Version 2)
Quarter: 2022Q1

REPORT INFORMATION
  Report Type: Spontaneous
  Country: US (occurrence: US)
  Receive Date: 20210830
  Receipt Date: 20220309
  Transmission Date: 20220423
  Serious: No
  Sender: FDA-Public Use
  Company Number: US-PFIZER INC-2019401345

PATIENT
  Age: 63 Year
  Sex: Female
  Weight: 62.6 kg

DRUGS (2)
  1. RELPAX [Suspect]
     Active Substance: ELETRIPTAN HYDROBROMIDE
     Indication: Headache
     Dosage: 20 MG, AS NEEDED (TAKE 1 AT FIRST SIGN OF H/A - MAY RPT IN 2HRS - DO NOT EXCEED 4 TABS/24H)
     Route: 048
  2. RELPAX [Suspect]
     Active Substance: ELETRIPTAN HYDROBROMIDE
     Indication: Migraine
     Dosage: 1 (20 MG) AT FIRST SIGN OF HEADACHE MAY REPEAT IN 2 HOURS, DO NOT EXCEED 4 TABS /24 HOURS

REACTIONS (2)
  - Vomiting [Unknown]
  - Dehydration [Unknown]
